FAERS Safety Report 9099391 (Version 2)
Quarter: 2013Q2

REPORT INFORMATION
  Report Type: Spontaneous
  Country: DE (occurrence: DE)
  Receive Date: 20130213
  Receipt Date: 20130409
  Transmission Date: 20140414
  Serious: Yes (Life-Threatening, Hospitalization, Other)
  Sender: FDA-Public Use
  Company Number: DE-B.I. PHARMACEUTICALS,INC./RIDGEFIELD-2013-DE-00350DE

PATIENT
  Age: 78 Year
  Sex: Male
  Weight: 75 kg

DRUGS (4)
  1. PRADAXA [Suspect]
     Indication: ATRIAL FIBRILLATION
     Dosage: 220 MG
     Dates: start: 20120622
  2. DELIX [Concomitant]
     Indication: HYPERTENSION
     Dosage: 5 MG
     Dates: start: 2001
  3. HCT [Concomitant]
     Indication: HYPERTENSION
     Dosage: 12.5 MG
     Dates: start: 2001
  4. SIMVASTATIN [Concomitant]
     Dosage: 40 MG

REACTIONS (4)
  - Embolic cerebral infarction [Recovered/Resolved with Sequelae]
  - Blood pressure fluctuation [Unknown]
  - Hemiplegia [Unknown]
  - Atrial fibrillation [Unknown]
